FAERS Safety Report 5790714-3 (Version None)
Quarter: 2008Q2

REPORT INFORMATION
  Report Type: 
  Country: None (occurrence: None)
  Receive Date: 20080626
  Receipt Date: 20080505
  Transmission Date: 20081010
  Serious: No
  Sender: FDA-Public Use
  Company Number: A0726297A

PATIENT

DRUGS (1)
  1. ALLI [Suspect]

REACTIONS (2)
  - FAECAL INCONTINENCE [None]
  - GASTROINTESTINAL DISORDER [None]
